FAERS Safety Report 15546657 (Version 1)
Quarter: 2018Q4

REPORT INFORMATION
  Report Type: Spontaneous
  Country: US (occurrence: US)
  Receive Date: 20181022
  Receipt Date: 20181022
  Transmission Date: 20190205
  Serious: Yes (Disabling, Other)
  Sender: FDA-Public Use
  Company Number: None

PATIENT
  Age: 23 Year
  Sex: Female
  Weight: 68.04 kg

DRUGS (1)
  1. MIRENA [Suspect]
     Active Substance: LEVONORGESTREL
     Dates: start: 20161031, end: 20171215

REACTIONS (7)
  - Acne cystic [None]
  - Blood cholesterol increased [None]
  - Haemorrhagic cyst [None]
  - Mood swings [None]
  - Ovarian cyst ruptured [None]
  - Headache [None]
  - Hypertension [None]

NARRATIVE: CASE EVENT DATE: 20171204
